FAERS Safety Report 6553601-9 (Version None)
Quarter: 2010Q1

REPORT INFORMATION
  Report Type: 
  Country: None (occurrence: None)
  Receive Date: 20100122
  Receipt Date: 20100111
  Transmission Date: 20100710
  Serious: Yes (Death)
  Sender: FDA-Public Use
  Company Number: 004797

PATIENT
  Age: 18 Year
  Sex: Male

DRUGS (4)
  1. ALPRAZOLAM [Suspect]
  2. CHLORPHENIRAMINE MALEATE [Suspect]
  3. DEXTROMETHORPHAN [Suspect]
  4. OXYCODONE HCL [Suspect]

REACTIONS (1)
  - DEATH [None]
